FAERS Safety Report 4299559-7 (Version None)
Quarter: 2004Q1

REPORT INFORMATION
  Report Type: 
  Country: None (occurrence: None)
  Receive Date: 20040217
  Receipt Date: 20031212
  Transmission Date: 20041129
  Serious: Yes (Hospitalization)
  Sender: FDA-Public Use
  Company Number: 2003IM000888

PATIENT
  Age: 63 Year
  Sex: Male

DRUGS (8)
  1. ADVAFERON (A643_INTERFERON ALFACON-1) [Suspect]
     Indication: HEPATITIS C
     Dosage: 18 MU;QD;SUBCUTANEOUS
     Route: 058
     Dates: start: 20030324, end: 20030717
  2. REBAMIPIDE [Concomitant]
  3. S.M. POWDER [Concomitant]
  4. SUCRALFATE [Concomitant]
  5. FAMOTIDINE [Concomitant]
  6. ASPARTATE POTASSIUM [Concomitant]
  7. URSODEOXYCHOLIC ACID [Concomitant]
  8. HYALURONATE SODIUM [Concomitant]

REACTIONS (2)
  - DIABETES MELLITUS [None]
  - HOARSENESS [None]
